FAERS Safety Report 18074071 (Version 2)
Quarter: 2020Q4

REPORT INFORMATION
  Report Type: Report from Study
  Country: DE (occurrence: DE)
  Receive Date: 20200727
  Receipt Date: 20201006
  Transmission Date: 20210113
  Serious: Yes (Death)
  Sender: FDA-Public Use
  Company Number: DE-IGSA-BIG0010779

PATIENT
  Age: 81 Year
  Sex: Female
  Weight: 90 kg

DRUGS (1)
  1. PLASBUMIN [Suspect]
     Active Substance: ALBUMIN HUMAN
     Indication: SEPTIC SHOCK
     Dosage: UNK UNK, UNKNOWN
     Route: 042
     Dates: start: 20200716, end: 20200720

REACTIONS (6)
  - Hepatic failure [Fatal]
  - Hepatic enzyme increased [Fatal]
  - Cardiac failure [Fatal]
  - Right ventricular failure [Fatal]
  - Hypervolaemia [Fatal]
  - Increased ventricular preload [Fatal]

NARRATIVE: CASE EVENT DATE: 20200719
